FAERS Safety Report 10502259 (Version 1)
Quarter: 2014Q4

REPORT INFORMATION
  Report Type: Spontaneous
  Country: US (occurrence: US)
  Receive Date: 20141007
  Receipt Date: 20141007
  Transmission Date: 20150528
  Serious: No
  Sender: FDA-Public Use
  Company Number: US-TEVA-513902USA

PATIENT
  Age: 38 Year
  Sex: Female
  Weight: 131.21 kg

DRUGS (2)
  1. PARAGARD T380A [Suspect]
     Active Substance: COPPER
     Indication: CONTRACEPTION
     Route: 015
     Dates: start: 20140813, end: 20140930
  2. IRON [Concomitant]
     Active Substance: IRON
     Indication: BLOOD IRON DECREASED

REACTIONS (2)
  - Device expulsion [Recovered/Resolved]
  - Uterine prolapse [Unknown]

NARRATIVE: CASE EVENT DATE: 20140930
